FAERS Safety Report 10675689 (Version 1)
Quarter: 2014Q4

REPORT INFORMATION
  Report Type: Other
  Country: CH (occurrence: CH)
  Receive Date: 20141224
  Receipt Date: 20141224
  Transmission Date: 20150529
  Serious: Yes (Hospitalization)
  Sender: FDA-Public Use
  Company Number: CH-CUBIST PHARMACEUTICALS, INC.-2014CBST001699

PATIENT

DRUGS (6)
  1. CUBICIN [Suspect]
     Active Substance: DAPTOMYCIN
     Indication: SUPERINFECTION
     Dosage: 500 MG, QD
     Route: 042
     Dates: start: 20141029, end: 20141114
  2. CUBICIN [Suspect]
     Active Substance: DAPTOMYCIN
     Indication: OFF LABEL USE
  3. CUBICIN [Suspect]
     Active Substance: DAPTOMYCIN
     Indication: STAPHYLOCOCCAL INFECTION
  4. CUBICIN [Suspect]
     Active Substance: DAPTOMYCIN
     Indication: DEVICE RELATED INFECTION
  5. CUBICIN [Suspect]
     Active Substance: DAPTOMYCIN
     Indication: CORYNEBACTERIUM INFECTION
  6. VANCOMYCIN [Concomitant]
     Active Substance: VANCOMYCIN
     Indication: PRODUCT USED FOR UNKNOWN INDICATION
     Dosage: UNK UNK, UNK
     Route: 065
     Dates: start: 20141114

REACTIONS (5)
  - C-reactive protein increased [Not Recovered/Not Resolved]
  - Off label use [Unknown]
  - Atypical pneumonia [Not Recovered/Not Resolved]
  - Lung infiltration [Not Recovered/Not Resolved]
  - Eosinophilia [Not Recovered/Not Resolved]

NARRATIVE: CASE EVENT DATE: 2014
